FAERS Safety Report 25223826 (Version 2)
Quarter: 2025Q4

REPORT INFORMATION
  Report Type: Spontaneous
  Country: US (occurrence: US)
  Receive Date: 20250422
  Receipt Date: 20251205
  Transmission Date: 20260117
  Serious: Yes (Death, Other)
  Sender: RANBAXY
  Company Number: US-MIMS-SUN-2025-USA-53343

PATIENT
  Sex: Male

DRUGS (1)
  1. ILUMYA [Suspect]
     Active Substance: TILDRAKIZUMAB-ASMN
     Indication: Psoriasis
     Dosage: 100 MILLIGRAM/ EVERY 12 WEEKS
     Route: 058
     Dates: end: 20250403

REACTIONS (1)
  - Death [Fatal]

NARRATIVE: CASE EVENT DATE: 20250403
